FAERS Safety Report 18269893 (Version 2)
Quarter: 2020Q3

REPORT INFORMATION
  Report Type: Report from Study
  Country: IT (occurrence: IT)
  Receive Date: 20200915
  Receipt Date: 20200922
  Transmission Date: 20201103
  Serious: Yes (Hospitalization, Other)
  Sender: FDA-Public Use
  Company Number: IT-PFIZER INC-2020340916

PATIENT
  Age: 93 Year
  Sex: Male

DRUGS (8)
  1. MITTOVAL [Suspect]
     Active Substance: ALFUZOSIN HYDROCHLORIDE
     Dosage: 60 MILLIGRAM
     Route: 048
     Dates: start: 20200707, end: 20200707
  2. DUTASTERIDE. [Suspect]
     Active Substance: DUTASTERIDE
     Dosage: 7.5 MILLIGRAM
     Route: 065
     Dates: start: 20200707, end: 20200707
  3. OXYBUTYNIN HYDROCHLORIDE [Suspect]
     Active Substance: OXYBUTYNIN CHLORIDE
     Dosage: 45 MILLIGRAM
     Route: 048
     Dates: start: 20200707, end: 20200707
  4. LEVOPRAID [LEVOSULPIRIDE] [Suspect]
     Active Substance: LEVOSULPIRIDE
     Dosage: 50 MILLIGRAM
     Route: 065
     Dates: start: 20200707, end: 20200707
  5. CALCIUM FOLINATE [Suspect]
     Active Substance: LEUCOVORIN CALCIUM
     Dosage: 45 MILLIGRAM
     Route: 065
     Dates: start: 20200707, end: 20200707
  6. PANTOPRAZOLE [Suspect]
     Active Substance: PANTOPRAZOLE
     Dosage: UNK
     Route: 065
     Dates: start: 20200707, end: 20200707
  7. XARELTO [Suspect]
     Active Substance: RIVAROXABAN
     Dosage: 45 MILLIGRAM
     Route: 065
     Dates: start: 20200707, end: 20200707
  8. LASIX [Suspect]
     Active Substance: FUROSEMIDE
     Dosage: 50 MILLIGRAM
     Route: 065
     Dates: start: 20200707, end: 20200707

REACTIONS (3)
  - Overdose [Unknown]
  - Disorganised speech [Not Recovered/Not Resolved]
  - Drug abuse [Unknown]

NARRATIVE: CASE EVENT DATE: 20200707
